FAERS Safety Report 10780263 (Version 1)
Quarter: 2015Q1

REPORT INFORMATION
  Report Type: Spontaneous
  Country: US (occurrence: US)
  Receive Date: 20150210
  Receipt Date: 20150210
  Transmission Date: 20150721
  Serious: Yes (Hospitalization, Disabling, Other)
  Sender: FDA-Public Use
  Company Number: US-ASTRAZENECA-2015SE11927

PATIENT
  Sex: Male

DRUGS (2)
  1. SEROQUEL XR [Suspect]
     Active Substance: QUETIAPINE FUMARATE
     Dosage: 600-800 MG, DAILY
     Route: 048
  2. LITHIUM [Concomitant]
     Active Substance: LITHIUM CARBONATE
     Route: 048

REACTIONS (2)
  - Mental retardation [Unknown]
  - Neuroleptic malignant syndrome [Unknown]
